FAERS Safety Report 5840552-8 (Version None)
Quarter: 2008Q3

REPORT INFORMATION
  Report Type: 
  Country: None (occurrence: None)
  Receive Date: 20080807
  Receipt Date: 20080807
  Transmission Date: 20090109
  Serious: Yes (Other)
  Sender: FDA-Public Use
  Company Number: None

PATIENT
  Age: 51 Year
  Sex: Female
  Weight: 70.3075 kg

DRUGS (1)
  1. CYTOTEC [Suspect]
     Indication: BIOPSY ENDOMETRIUM
     Dosage: 4 PILLS 1 TIME INTRA-UTERI, 1 DAY
     Route: 067
     Dates: start: 20080806, end: 20080806

REACTIONS (6)
  - ABDOMINAL PAIN UPPER [None]
  - ASTHENIA [None]
  - DIARRHOEA [None]
  - DIZZINESS [None]
  - HEADACHE [None]
  - PAIN [None]
